FAERS Safety Report 7618010-X (Version None)
Quarter: 2011Q3

REPORT INFORMATION
  Report Type: 
  Country: None (occurrence: None)
  Receive Date: 20110718
  Receipt Date: 20110711
  Transmission Date: 20111222
  Serious: Yes (Life-Threatening, Other)
  Sender: FDA-Public Use
  Company Number: PHHY2011US61873

PATIENT

DRUGS (1)
  1. CLOZAPINE [Suspect]

REACTIONS (4)
  - BONE NEOPLASM MALIGNANT [None]
  - NEUTROPHIL COUNT DECREASED [None]
  - TERMINAL STATE [None]
  - WHITE BLOOD CELL COUNT DECREASED [None]
